FAERS Safety Report 6175282-9 (Version None)
Quarter: 2009Q2

REPORT INFORMATION
  Report Type: 
  Country: None (occurrence: None)
  Receive Date: 20090430
  Receipt Date: 20090209
  Transmission Date: 20091009
  Serious: Yes (Hospitalization)
  Sender: FDA-Public Use
  Company Number: US-ASTRAZENECA-2009UW03596

PATIENT
  Sex: Female
  Weight: 98.4 kg

DRUGS (10)
  1. NEXIUM [Suspect]
     Route: 048
  2. ADVAIR HFA [Concomitant]
     Indication: ASTHMA
  3. ALBUTEROL [Concomitant]
     Indication: ASTHMA
  4. GLIPIZIDE [Concomitant]
     Indication: DIABETES MELLITUS
     Route: 048
  5. LEVAQUIN [Concomitant]
     Indication: ANTIBIOTIC THERAPY
     Route: 048
  6. LISINOPRIL [Concomitant]
     Indication: PROPHYLAXIS
     Route: 048
  7. LORATADINE [Concomitant]
     Indication: MULTIPLE ALLERGIES
     Route: 048
  8. METFORMIN HCL [Concomitant]
     Indication: DIABETES MELLITUS
     Route: 048
  9. PREDNISONE [Concomitant]
     Indication: ASTHMA
     Dosage: TAPERED DOSE
     Route: 048
  10. THEOPHYLLINE [Concomitant]
     Indication: ASTHMA

REACTIONS (2)
  - ASTHMA [None]
  - GASTROOESOPHAGEAL REFLUX DISEASE [None]
